FAERS Safety Report 17519759 (Version 1)
Quarter: 2020Q1

REPORT INFORMATION
  Report Type: Spontaneous
  Country: US (occurrence: US)
  Receive Date: 20200309
  Receipt Date: 20200309
  Transmission Date: 20200409
  Serious: No
  Sender: FDA-Public Use
  Company Number: None

PATIENT
  Age: 64 Year
  Sex: Female
  Weight: 47.2 kg

DRUGS (1)
  1. PROLIA [Suspect]
     Active Substance: DENOSUMAB
     Indication: OSTEOPOROSIS POSTMENOPAUSAL
     Dosage: ?          OTHER FREQUENCY:EVERY 6 MONTHS;?
     Route: 040
     Dates: start: 20200127

REACTIONS (1)
  - Tongue pruritus [None]

NARRATIVE: CASE EVENT DATE: 20200127
